FAERS Safety Report 5507443-3 (Version None)
Quarter: 2007Q4

REPORT INFORMATION
  Report Type: 
  Country: None (occurrence: None)
  Receive Date: 20071106
  Receipt Date: 20071031
  Transmission Date: 20080405
  Serious: Yes (Hospitalization)
  Sender: FDA-Public Use
  Company Number: FR-ELI_LILLY_AND_COMPANY-FR200710007234

PATIENT
  Age: 43 Year
  Sex: Male

DRUGS (5)
  1. ZYPREXA [Suspect]
     Indication: PSYCHOTIC DISORDER
     Dosage: UNK, UNKNOWN
     Route: 048
  2. SERESTA [Concomitant]
     Dosage: UNK, UNKNOWN
     Route: 048
  3. ZOLOFT [Concomitant]
     Dosage: UNK, UNKNOWN
     Route: 048
  4. NOCTAMIDE [Concomitant]
     Dosage: UNK, UNKNOWN
     Route: 048
  5. TERCIAN [Concomitant]
     Dosage: UNK, UNKNOWN
     Route: 048

REACTIONS (1)
  - LYME DISEASE [None]
